FAERS Safety Report 9399114 (Version 1)
Quarter: 2013Q3

REPORT INFORMATION
  Report Type: Spontaneous
  Country: FR (occurrence: FR)
  Receive Date: 20130715
  Receipt Date: 20130715
  Transmission Date: 20140515
  Serious: Yes (Other)
  Sender: FDA-Public Use
  Company Number: FR-ROCHE-1232983

PATIENT
  Sex: Male
  Weight: 61 kg

DRUGS (1)
  1. ZELBORAF [Suspect]
     Indication: PRODUCT USED FOR UNKNOWN INDICATION
     Route: 048
     Dates: start: 201212

REACTIONS (3)
  - Iridocyclitis [Unknown]
  - Uveitis [Unknown]
  - Iris adhesions [Unknown]
